FAERS Safety Report 17448430 (Version 4)
Quarter: 2020Q2

REPORT INFORMATION
  Report Type: Spontaneous
  Country: US (occurrence: US)
  Receive Date: 20200223
  Receipt Date: 20200427
  Transmission Date: 20200713
  Serious: No
  Sender: FDA-Public Use
  Company Number: US-DRREDDYS-USA/USA/20/0119786

PATIENT
  Age: 49 Year
  Sex: Male

DRUGS (1)
  1. TACROLIMUS. [Suspect]
     Active Substance: TACROLIMUS
     Indication: IMMUNOSUPPRESSANT DRUG THERAPY
     Dosage: GOAL FOR TACROLIMUS LEVEL AROUMD 8-10 NG/ML
     Route: 048
     Dates: start: 20120309, end: 20120626

REACTIONS (1)
  - Microangiopathy [Recovered/Resolved]

NARRATIVE: CASE EVENT DATE: 20120613
